FAERS Safety Report 6358943-8 (Version None)
Quarter: 2009Q3

REPORT INFORMATION
  Report Type: 
  Country: None (occurrence: None)
  Receive Date: 20090914
  Receipt Date: 20090903
  Transmission Date: 20100115
  Serious: Yes (Death)
  Sender: FDA-Public Use
  Company Number: GXKR2009DE09883

PATIENT
  Age: 59 Year
  Sex: Female

DRUGS (1)
  1. DOXEPIN HCL [Suspect]
     Dosage: 2000 MG TOTAL, ORAL
     Route: 048

REACTIONS (1)
  - DRUG TOXICITY [None]
